FAERS Safety Report 6136763-7 (Version None)
Quarter: 2009Q1

REPORT INFORMATION
  Report Type: 
  Country: None (occurrence: None)
  Receive Date: 20090330
  Receipt Date: 20090318
  Transmission Date: 20090719
  Serious: Yes (Hospitalization)
  Sender: FDA-Public Use
  Company Number: US-PFIZER INC-2007095064

PATIENT
  Sex: Male
  Weight: 73.5 kg

DRUGS (14)
  1. SUNITINIB MALATE [Suspect]
     Indication: COLORECTAL CANCER METASTATIC
     Dosage: 37.5 MG, 1X/DAY
     Route: 048
     Dates: start: 20071003
  2. OXALIPLATIN [Suspect]
     Indication: COLORECTAL CANCER METASTATIC
     Dosage: FREQUENCY Q2 WKS; INTERVAL Q 2WKS
     Route: 042
     Dates: start: 20071003
  3. LEUCOVORIN CALCIUM [Suspect]
     Indication: COLORECTAL CANCER METASTATIC
     Dosage: FREQUENCY Q2 WKS; INTERVAL Q 2WKS
     Route: 042
     Dates: start: 20071003
  4. FLUOROURACIL [Suspect]
     Indication: COLORECTAL CANCER METASTATIC
     Dosage: PUSH,FREQUENCY Q2 WKS; INTERVAL Q 2WKS
     Route: 042
     Dates: start: 20071003
  5. FLUOROURACIL [Suspect]
     Dosage: 4800 MG, F: Q2 WKS OVER 46 H; INTRAVENOUS INFUSION
     Route: 042
     Dates: start: 20071003
  6. REGLAN [Concomitant]
     Indication: NAUSEA
     Dosage: Q8H, AS NECESSARY
     Route: 048
     Dates: start: 20071004
  7. REGLAN [Concomitant]
     Indication: VOMITING
  8. COMPAZINE [Concomitant]
     Indication: NAUSEA
     Dosage: Q6H, AS NECESSARY
     Route: 048
     Dates: start: 20071017
  9. COMPAZINE [Concomitant]
     Indication: VOMITING
  10. LACTULOSE [Concomitant]
     Indication: CONSTIPATION
     Route: 048
     Dates: start: 20071017
  11. OXYCONTIN [Concomitant]
     Indication: PAIN
     Dosage: Q 12H
     Route: 048
     Dates: start: 20071017
  12. SENNA [Concomitant]
     Indication: CONSTIPATION
     Dosage: 2 TABS,QHS
     Route: 048
     Dates: start: 20071017
  13. COLACE [Concomitant]
     Indication: CONSTIPATION
     Dosage: 100 MG, 2X/DAY
     Route: 048
     Dates: start: 20071017
  14. OXYCODONE HCL [Concomitant]
     Indication: PAIN
     Dosage: Q3H PRN
     Route: 048
     Dates: start: 20071003

REACTIONS (1)
  - NEUTROPENIA [None]
